FAERS Safety Report 4924097-5 (Version None)
Quarter: 2006Q1

REPORT INFORMATION
  Report Type: 
  Country: None (occurrence: None)
  Receive Date: 20060227
  Receipt Date: 20051114
  Transmission Date: 20060701
  Serious: No
  Sender: FDA-Public Use
  Company Number: US-GLAXOSMITHKLINE-A0582157A

PATIENT
  Age: 60 Year
  Sex: Female

DRUGS (7)
  1. WELLBUTRIN XL [Suspect]
     Indication: DEPRESSION
     Dosage: 300MG PER DAY
     Route: 048
     Dates: start: 20051109
  2. CRESTOR [Concomitant]
  3. PROTONIX [Concomitant]
  4. SYNTHROID [Concomitant]
  5. CEPHALEXIN [Concomitant]
  6. BIAXIN XL [Concomitant]
  7. MELATONIN [Concomitant]

REACTIONS (2)
  - INSOMNIA [None]
  - TINNITUS [None]
